FAERS Safety Report 18895874 (Version 1)
Quarter: 2021Q1

REPORT INFORMATION
  Report Type: Spontaneous
  Country: DE (occurrence: DE)
  Receive Date: 20210216
  Receipt Date: 20210216
  Transmission Date: 20210420
  Serious: No
  Sender: FDA-Public Use
  Company Number: DE-ALKEM LABORATORIES LIMITED-DE-ALKEM-2020-07568

PATIENT
  Age: 53 Year
  Sex: Male
  Weight: 93 kg

DRUGS (2)
  1. SITAGLIPTIN [Concomitant]
     Active Substance: SITAGLIPTIN
     Indication: DIABETES MELLITUS
     Dosage: 100 MILLIGRAM, QD, (EVERY 1 DAY)
     Route: 065
  2. PREGABALIN. [Suspect]
     Active Substance: PREGABALIN
     Indication: NEURALGIA
     Dosage: 150?200 MG / D DIVIDED INTO 2 DAILY DOSES
     Route: 048
     Dates: start: 20200416, end: 20200518

REACTIONS (7)
  - Pollakiuria [Not Recovered/Not Resolved]
  - Vision blurred [Unknown]
  - Dysuria [Not Recovered/Not Resolved]
  - Crystal urine [Not Recovered/Not Resolved]
  - Micturition disorder [Not Recovered/Not Resolved]
  - Metabolic disorder [Not Recovered/Not Resolved]
  - Aggression [Unknown]

NARRATIVE: CASE EVENT DATE: 2020
